FAERS Safety Report 15957519 (Version 1)
Quarter: 2019Q1

REPORT INFORMATION
  Report Type: Spontaneous
  Country: US (occurrence: US)
  Receive Date: 20190123
  Receipt Date: 20190123
  Transmission Date: 20190417
  Serious: Yes (Life-Threatening, Hospitalization)
  Sender: FDA-Public Use
  Company Number: None

PATIENT
  Age: 35 Year
  Sex: Male
  Weight: 83.3 kg

DRUGS (1)
  1. LISINOPRIL. [Suspect]
     Active Substance: LISINOPRIL
     Indication: HYPERTENSION
     Route: 048
     Dates: start: 2014

REACTIONS (6)
  - Laryngeal oedema [None]
  - Pharyngeal oedema [None]
  - Renal failure [None]
  - Hypertensive crisis [None]
  - Acute respiratory failure [None]
  - Dysphagia [None]

NARRATIVE: CASE EVENT DATE: 20180731
